FAERS Safety Report 6834879-0 (Version None)
Quarter: 2010Q3

REPORT INFORMATION
  Report Type: 
  Country: None (occurrence: None)
  Receive Date: 20100712
  Receipt Date: 20070419
  Transmission Date: 20110219
  Serious: No
  Sender: FDA-Public Use
  Company Number: US-PFIZER INC-2007032748

PATIENT
  Sex: Male
  Weight: 93.181 kg

DRUGS (10)
  1. CHANTIX [Suspect]
     Indication: SMOKING CESSATION THERAPY
     Dates: start: 20070415
  2. COUMADIN [Concomitant]
  3. PROVIGIL [Concomitant]
  4. TOPAMAX [Concomitant]
  5. HYDROCODONE BITARTRATE [Concomitant]
  6. ALTACE [Concomitant]
  7. ZOCOR [Concomitant]
  8. CYMBALTA [Concomitant]
  9. ADVAIR DISKUS 100/50 [Concomitant]
  10. PROVENTIL GENTLEHALER [Concomitant]

REACTIONS (1)
  - FATIGUE [None]
